FAERS Safety Report 10711621 (Version 5)
Quarter: 2015Q2

REPORT INFORMATION
  Report Type: Report from Study
  Country: US (occurrence: US)
  Receive Date: 20150114
  Receipt Date: 20150608
  Transmission Date: 20150821
  Serious: Yes (Hospitalization, Other)
  Sender: FDA-Public Use
  Company Number: US-ALEXION-A201500052

PATIENT

DRUGS (1)
  1. SOLIRIS [Suspect]
     Active Substance: ECULIZUMAB
     Indication: HAEMOLYTIC URAEMIC SYNDROME
     Dosage: UNK
     Route: 042

REACTIONS (6)
  - Tinea versicolour [Unknown]
  - Ear infection [Recovered/Resolved]
  - Cat scratch disease [Recovered/Resolved]
  - Insomnia [Unknown]
  - Deafness [Unknown]
  - Rash [Unknown]

NARRATIVE: CASE EVENT DATE: 20150320
